FAERS Safety Report 25428597 (Version 1)
Quarter: 2025Q2

REPORT INFORMATION
  Report Type: Spontaneous
  Country: US (occurrence: None)
  Receive Date: 20250612
  Receipt Date: 20250612
  Transmission Date: 20250717
  Serious: Yes (Hospitalization)
  Sender: FDA-CTU
  Company Number: None

PATIENT
  Sex: Male

DRUGS (1)
  1. HUMIRA [Suspect]
     Active Substance: ADALIMUMAB
     Indication: Colitis ulcerative
     Dosage: FREQUENCY : DAILY;?
     Route: 058
     Dates: start: 20250513

REACTIONS (4)
  - Quality of life decreased [None]
  - Arthropod bite [None]
  - Infected bite [None]
  - Internal haemorrhage [None]
